FAERS Safety Report 9221755 (Version 1)
Quarter: 2013Q1

REPORT INFORMATION
  Report Type: Spontaneous
  Country: US (occurrence: None)
  Receive Date: 20120831
  Receipt Date: 20120831
  Transmission Date: 20140127
  Serious: No
  Sender: FDA-Public Use
  Company Number: 1000029777

PATIENT
  Age: 87 Year
  Sex: Female

DRUGS (4)
  1. DALIRESP [Suspect]
     Indication: CHRONIC OBSTRUCTIVE PULMONARY DISEASE
     Route: 048
     Dates: start: 201203
  2. ADVAIR (SERETIDE) (SERETIDE) [Concomitant]
  3. SINGULAIR [Concomitant]
  4. SPIRIVA (TIOTROPIUM BROMIDE) (TIOTROPIUM BROMIDE) [Concomitant]

REACTIONS (6)
  - Nervousness [None]
  - Nausea [None]
  - Back pain [None]
  - Muscle spasms [None]
  - Chills [None]
  - Dysgeusia [None]
